FAERS Safety Report 6848885-3 (Version None)
Quarter: 2010Q3

REPORT INFORMATION
  Report Type: 
  Country: None (occurrence: None)
  Receive Date: 20100716
  Receipt Date: 20080126
  Transmission Date: 20110219
  Serious: Yes (Other)
  Sender: FDA-Public Use
  Company Number: US-PFIZER INC-2007074909

PATIENT
  Sex: Female
  Weight: 85.5 kg

DRUGS (3)
  1. CHANTIX [Suspect]
     Indication: SMOKING CESSATION THERAPY
     Route: 048
     Dates: start: 20070826, end: 20070902
  2. PREDNISONE [Concomitant]
  3. METHOTREXATE [Concomitant]

REACTIONS (5)
  - ABNORMAL SENSATION IN EYE [None]
  - DIZZINESS [None]
  - HEADACHE [None]
  - PHOTOPHOBIA [None]
  - VISION BLURRED [None]
